FAERS Safety Report 12009873 (Version 1)
Quarter: 2016Q1

REPORT INFORMATION
  Report Type: Spontaneous
  Country: GR (occurrence: GR)
  Receive Date: 20160205
  Receipt Date: 20160205
  Transmission Date: 20160526
  Serious: Yes (Death)
  Sender: FDA-Public Use
  Company Number: GR-CIPLA LTD.-2016GR00778

PATIENT

DRUGS (3)
  1. GEMCITABINE [Suspect]
     Active Substance: GEMCITABINE\GEMCITABINE HYDROCHLORIDE
     Indication: NON-SMALL CELL LUNG CANCER
     Dosage: 1250 MG/M2, ON DAYS 1 AND 14
  2. CARBOPLATIN. [Suspect]
     Active Substance: CARBOPLATIN
     Indication: NON-SMALL CELL LUNG CANCER
     Dosage: AUC 3, 1-HOUR INFUSION ON DAYS 1 AND 14
  3. ONDANSENTRON [Concomitant]
     Route: 065

REACTIONS (1)
  - Cardiovascular disorder [Fatal]
